FAERS Safety Report 8560823-4 (Version None)
Quarter: 2012Q3

REPORT INFORMATION
  Report Type: 
  Country: None (occurrence: None)
  Receive Date: 20120802
  Receipt Date: 20120731
  Transmission Date: 20120928
  Serious: Yes (Other)
  Sender: FDA-Public Use
  Company Number: US-AMGEN-USASP2011057676

PATIENT
  Age: 73 Year
  Sex: Female
  Weight: 55.782 kg

DRUGS (12)
  1. ENBREL [Suspect]
     Dosage: 50 MG, QWK
     Dates: start: 20020302
  2. METHOTREXATE [Concomitant]
     Dosage: 10 MG, QWK
  3. ENBREL [Suspect]
     Indication: RHEUMATOID ARTHRITIS
     Dosage: 50 MG, QWK
     Route: 058
     Dates: start: 20060201
  4. TREXALL [Concomitant]
     Dosage: 10 MG, UNK
     Dates: start: 20020101
  5. ZOSTAVAX [Concomitant]
     Dosage: UNK
     Dates: start: 20090101, end: 20090101
  6. TEGRETOL [Concomitant]
     Dosage: 250 MG, QD
  7. VITAMIN TAB [Concomitant]
     Dosage: UNK
  8. PNEUMOVAX 23 [Concomitant]
     Dosage: UNK
     Dates: start: 20070101, end: 20070101
  9. FOLIC ACID [Concomitant]
     Dosage: 1 MG, QD
  10. BIOTIN [Concomitant]
     Dosage: 5000 MUG, QD
  11. VITAMIN D [Concomitant]
     Dosage: 2000 IU, QD
  12. CALCIUM [Concomitant]
     Dosage: 1.2 G, QD

REACTIONS (22)
  - OSTEOPENIA [None]
  - VULVOVAGINAL MYCOTIC INFECTION [None]
  - ACOUSTIC NEUROMA [None]
  - INTRAOCULAR LENS IMPLANT [None]
  - FINGER DEFORMITY [None]
  - SYNOVITIS [None]
  - URINARY TRACT INFECTION [None]
  - FACIAL PARESIS [None]
  - ALOPECIA [None]
  - GAIT DISTURBANCE [None]
  - PAIN IN EXTREMITY [None]
  - SLEEP DISORDER [None]
  - JOINT RANGE OF MOTION DECREASED [None]
  - HIP ARTHROPLASTY [None]
  - ARTHRALGIA [None]
  - OSTEOARTHRITIS [None]
  - CELLULITIS [None]
  - OEDEMA PERIPHERAL [None]
  - INFECTED VARICOSE VEIN [None]
  - INJECTION SITE PAIN [None]
  - JOINT SWELLING [None]
  - CATARACT [None]
